FAERS Safety Report 20235836 (Version 2)
Quarter: 2022Q1

REPORT INFORMATION
  Report Type: Report from Study
  Country: FR (occurrence: FR)
  Receive Date: 20211228
  Receipt Date: 20220221
  Transmission Date: 20220423
  Serious: Yes (Hospitalization, Other)
  Sender: FDA-Public Use
  Company Number: FR-SAMSUNG BIOEPIS-SB-2020-30940

PATIENT
  Age: 78 Year
  Sex: Male
  Weight: 63 kg

DRUGS (11)
  1. INFLIXIMAB [Suspect]
     Active Substance: INFLIXIMAB
     Indication: Crohn^s disease
     Dosage: VIAL
     Route: 042
     Dates: start: 20180301, end: 201911
  2. RIFAMPIN [Suspect]
     Active Substance: RIFAMPIN
     Indication: Product used for unknown indication
     Dosage: UNKNOWN, CLINDAMYCIN AND RIFAMPICIN IV UNTIL 20-NOV-2019 AND WITH MINOCYCLINE AND RIFAMPICIN FROM 20
     Route: 042
     Dates: end: 20191203
  3. REMICADE [Concomitant]
     Active Substance: INFLIXIMAB
     Indication: Crohn^s disease
     Route: 065
     Dates: start: 20200117
  4. BISOPROLOL [Concomitant]
     Active Substance: BISOPROLOL
     Indication: Product used for unknown indication
     Dosage: ON MORNING
     Route: 065
  5. LORAZEPAM [Concomitant]
     Active Substance: LORAZEPAM
     Indication: Product used for unknown indication
     Dosage: AT BEDTIME
     Route: 065
  6. LANSOPRAZOLE [Concomitant]
     Active Substance: LANSOPRAZOLE
     Indication: Product used for unknown indication
     Dosage: THE EVENING
     Route: 065
  7. FUROSEMIDE [Concomitant]
     Active Substance: FUROSEMIDE
     Indication: Product used for unknown indication
     Dosage: ON MORNING
     Route: 065
  8. APIXABAN [Concomitant]
     Active Substance: APIXABAN
     Indication: Product used for unknown indication
     Dosage: MORNING AND EVENING
     Route: 065
  9. SPIRIVA [Concomitant]
     Active Substance: TIOTROPIUM BROMIDE MONOHYDRATE
     Indication: Product used for unknown indication
     Route: 065
  10. INDACATEROL [Concomitant]
     Active Substance: INDACATEROL
     Indication: Product used for unknown indication
     Dosage: ON EVENING
     Route: 065
  11. ACETAMINOPHEN [Concomitant]
     Active Substance: ACETAMINOPHEN
     Indication: Pain
     Dosage: TWO CAPSULES MORNING AND EVENING
     Route: 065

REACTIONS (22)
  - Periprosthetic fracture [Recovered/Resolved]
  - Hip arthroplasty [Recovered/Resolved]
  - Fall [Recovered/Resolved]
  - Joint ankylosis [Not Recovered/Not Resolved]
  - Bursitis [Not Recovered/Not Resolved]
  - Spigelian hernia [Unknown]
  - Staphylococcus test positive [Recovered/Resolved]
  - Chondrocalcinosis [Recovered/Resolved]
  - Drug intolerance [Recovered/Resolved]
  - Food intolerance [Recovered/Resolved]
  - Gastroenteritis [Recovered/Resolved]
  - Food poisoning [Recovered/Resolved]
  - Influenza A virus test positive [Recovered/Resolved]
  - Craniocerebral injury [Recovered/Resolved]
  - Haemarthrosis [Not Recovered/Not Resolved]
  - Cholestasis [Unknown]
  - Pyrexia [Unknown]
  - Lung disorder [Recovered/Resolved]
  - Osteoarthritis [Unknown]
  - Hypercalcaemia [Unknown]
  - Malnutrition [Unknown]
  - Blood thyroid stimulating hormone increased [Unknown]

NARRATIVE: CASE EVENT DATE: 20190801
